FAERS Safety Report 7050498-8 (Version None)
Quarter: 2010Q4

REPORT INFORMATION
  Report Type: 
  Country: None (occurrence: None)
  Receive Date: 20101018
  Receipt Date: 20101005
  Transmission Date: 20110411
  Serious: Yes (Other)
  Sender: FDA-Public Use
  Company Number: NO-ELI_LILLY_AND_COMPANY-NO201007001999

PATIENT
  Sex: Female

DRUGS (4)
  1. ZYPREXA [Suspect]
     Indication: PSYCHOTIC DISORDER
     Dosage: 15 MG, UNKNOWN
     Route: 048
     Dates: start: 20100611, end: 20100702
  2. ORFIRIL [Concomitant]
     Indication: AFFECTIVE DISORDER
     Dosage: 900 MG, DAILY (1/D)
     Dates: start: 20100607, end: 20100712
  3. LAMICTAL [Concomitant]
     Indication: AFFECTIVE DISORDER
     Dosage: 100 MG, DAILY (1/D)
  4. SEROQUEL [Concomitant]
     Indication: PSYCHOTIC DISORDER
     Dosage: 800 MG, UNK
     Route: 048

REACTIONS (2)
  - NEUTROPENIA [None]
  - WHITE BLOOD CELL COUNT DECREASED [None]
